FAERS Safety Report 13535584 (Version 4)
Quarter: 2018Q2

REPORT INFORMATION
  Report Type: Spontaneous
  Country: US (occurrence: US)
  Receive Date: 20170511
  Receipt Date: 20180426
  Transmission Date: 20180711
  Serious: Yes (Other)
  Sender: FDA-Public Use
  Company Number: ALCN2017US003166

PATIENT
  Age: 59 Year
  Sex: Male
  Weight: 71.67 kg

DRUGS (13)
  1. TRAVATAN Z [Suspect]
     Active Substance: TRAVOPROST
     Indication: INTRAOPERATIVE CARE
     Dosage: UNK UNK, QD
     Route: 047
     Dates: start: 20170413
  2. BETADINE [Suspect]
     Active Substance: POVIDONE-IODINE
     Indication: PRODUCT USED FOR UNKNOWN INDICATION
     Dosage: UNK UNK, BID
     Route: 047
     Dates: start: 20170413
  3. BESIVANCE [Concomitant]
     Active Substance: BESIFLOXACIN
     Dosage: UNK, Q2H
     Route: 047
     Dates: start: 20170414
  4. LOTEMAX [Concomitant]
     Active Substance: LOTEPREDNOL ETABONATE
     Indication: PREOPERATIVE CARE
     Dosage: UNK UNK, BID
     Route: 047
     Dates: start: 20170410, end: 20170412
  5. SYSTANE (HYPROMELLOSE 2910 (4000 MPA.S)) [Suspect]
     Active Substance: HYPROMELLOSE 2910 (4000 MPA.S)
     Indication: INTRAOPERATIVE CARE
     Dosage: UNK UNK, QD
     Route: 047
     Dates: start: 20170413
  6. LOTEMAX [Concomitant]
     Active Substance: LOTEPREDNOL ETABONATE
     Dosage: UNK UNK, QID
     Route: 047
     Dates: start: 20170413, end: 20170414
  7. BESIVANCE [Concomitant]
     Active Substance: BESIFLOXACIN
     Indication: PREOPERATIVE CARE
     Dosage: UNK UNK, TID
     Route: 047
     Dates: start: 20170410, end: 20170412
  8. BESIVANCE [Concomitant]
     Active Substance: BESIFLOXACIN
     Dosage: UNK, TID
     Route: 047
     Dates: end: 20170414
  9. ILEVRO [Concomitant]
     Active Substance: NEPAFENAC
     Dosage: UNK, QD
     Route: 047
     Dates: start: 20170413, end: 20170414
  10. COMBIGAN [Suspect]
     Active Substance: BRIMONIDINE TARTRATE\TIMOLOL MALEATE
     Indication: INTRAOPERATIVE CARE
     Dosage: UNK UNK, QD
     Route: 047
     Dates: start: 20170413
  11. BESIVANCE [Concomitant]
     Active Substance: BESIFLOXACIN
     Indication: INTRAOPERATIVE CARE
     Dosage: UNK UNK, BID
     Route: 047
     Dates: start: 20170413
  12. BSS [Suspect]
     Active Substance: CALCIUM CHLORIDE\MAGNESIUM CHLORIDE\POTASSIUM CHLORIDE\SODIUM ACETATE\SODIUM CHLORIDE\SODIUM CITRATE
     Indication: EYE IRRIGATION
     Dosage: UNK
     Route: 047
     Dates: start: 20170413
  13. ILEVRO [Concomitant]
     Active Substance: NEPAFENAC
     Indication: PREOPERATIVE CARE
     Dosage: UNK UNK, QD
     Route: 047
     Dates: start: 20170410, end: 20170412

REACTIONS (6)
  - Eye inflammation [Not Recovered/Not Resolved]
  - Endophthalmitis [Not Recovered/Not Resolved]
  - Vision blurred [Not Recovered/Not Resolved]
  - Hypopyon [Not Recovered/Not Resolved]
  - Anterior chamber fibrin [Not Recovered/Not Resolved]
  - Corneal oedema [Not Recovered/Not Resolved]

NARRATIVE: CASE EVENT DATE: 20170414
